FAERS Safety Report 16277726 (Version 1)
Quarter: 2019Q2

REPORT INFORMATION
  Report Type: Spontaneous
  Country: US (occurrence: US)
  Receive Date: 20190506
  Receipt Date: 20190506
  Transmission Date: 20190711
  Serious: No
  Sender: FDA-Public Use
  Company Number: US-PFIZER INC-2019180943

PATIENT
  Age: 66 Year
  Sex: Male
  Weight: 113.4 kg

DRUGS (1)
  1. VIAGRA [Suspect]
     Active Substance: SILDENAFIL CITRATE
     Dosage: UNK (45 MINS BEFORE SEXUAL ACTIVITY)

REACTIONS (2)
  - Drug ineffective [Unknown]
  - Expired product administered [Unknown]
